FAERS Safety Report 6279017-0 (Version None)
Quarter: 2009Q3

REPORT INFORMATION
  Report Type: 
  Country: None (occurrence: None)
  Receive Date: 20090723
  Receipt Date: 20090715
  Transmission Date: 20100115
  Serious: Yes (Other)
  Sender: FDA-Public Use
  Company Number: US-WYE-H10172709

PATIENT
  Sex: Female
  Weight: 61.29 kg

DRUGS (3)
  1. PRISTIQ [Suspect]
     Indication: ANXIETY
     Route: 048
     Dates: start: 20090501, end: 20090601
  2. PRISTIQ [Suspect]
     Route: 048
     Dates: start: 20090601, end: 20090701
  3. PRISTIQ [Suspect]
     Route: 048
     Dates: start: 20090701, end: 20090710

REACTIONS (12)
  - DIARRHOEA [None]
  - DRUG INEFFECTIVE [None]
  - DRUG WITHDRAWAL SYNDROME [None]
  - FALL [None]
  - HYPOAESTHESIA [None]
  - INFLUENZA [None]
  - INSOMNIA [None]
  - LOSS OF CONSCIOUSNESS [None]
  - MOTION SICKNESS [None]
  - NAUSEA [None]
  - PARAESTHESIA [None]
  - VOMITING [None]
